FAERS Safety Report 9786558 (Version 2)
Quarter: 2014Q1

REPORT INFORMATION
  Report Type: Spontaneous
  Country: US (occurrence: US)
  Receive Date: 20131227
  Receipt Date: 20140321
  Transmission Date: 20141002
  Serious: Yes (Other)
  Sender: FDA-Public Use
  Company Number: US-PFIZER INC-2013366760

PATIENT
  Age: 88 Year
  Sex: Male

DRUGS (1)
  1. SULFASALAZINE [Suspect]
     Indication: COLITIS ULCERATIVE
     Dosage: 2 G/DAY

REACTIONS (3)
  - Interstitial lung disease [Recovered/Resolved]
  - Pulmonary fibrosis [Recovered/Resolved]
  - Eosinophilia [Recovered/Resolved]
